FAERS Safety Report 9190563 (Version 1)
Quarter: 2013Q1

REPORT INFORMATION
  Report Type: Spontaneous
  Country: US (occurrence: None)
  Receive Date: 20130322
  Receipt Date: 20130322
  Transmission Date: 20140127
  Serious: Yes (Other)
  Sender: FDA-Public Use
  Company Number: 2013-033279

PATIENT
  Age: 11 Year
  Sex: Female
  Weight: 47.6 kg

DRUGS (1)
  1. ONE A DAY TEEN ADVANTAGE FOR HER (MULTIVITAMINS + MINERALS) FILM-COATED TABLET [Suspect]
     Route: 048
     Dates: start: 2013, end: 2013

REACTIONS (3)
  - Choking [None]
  - Retching [None]
  - Off label use [None]
